FAERS Safety Report 17606436 (Version 1)
Quarter: 2020Q1

REPORT INFORMATION
  Report Type: Report from Study
  Country: FR (occurrence: FR)
  Receive Date: 20200331
  Receipt Date: 20200331
  Transmission Date: 20200409
  Serious: Yes (Other)
  Sender: FDA-Public Use
  Company Number: FR-JAZZ-2020-FR-004343

PATIENT

DRUGS (1)
  1. DEFITELIO [Suspect]
     Active Substance: DEFIBROTIDE SODIUM
     Indication: VENOOCCLUSIVE LIVER DISEASE
     Dosage: 22.85 MILLIGRAM PER KG, QD
     Route: 042
     Dates: start: 20160918, end: 20160923

REACTIONS (2)
  - Hodgkin^s disease recurrent [Unknown]
  - Off label use [Unknown]

NARRATIVE: CASE EVENT DATE: 20160918
